FAERS Safety Report 16790856 (Version 1)
Quarter: 2019Q3

REPORT INFORMATION
  Report Type: Spontaneous
  Country: PT (occurrence: PT)
  Receive Date: 20190910
  Receipt Date: 20190910
  Transmission Date: 20191005
  Serious: Yes (Hospitalization, Other)
  Sender: FDA-Public Use
  Company Number: PT-MYLANLABS-2019M1083766

PATIENT
  Age: 78 Year
  Sex: Male

DRUGS (1)
  1. PIPERACILLIN/TAZOBACTAM [Suspect]
     Active Substance: PIPERACILLIN SODIUM\TAZOBACTAM SODIUM
     Indication: PROSTATIC ABSCESS
     Dosage: UNK
     Route: 065

REACTIONS (6)
  - Escherichia infection [Unknown]
  - Anuria [Unknown]
  - Hypotension [Unknown]
  - Urine output decreased [Unknown]
  - Septic shock [Unknown]
  - Product use in unapproved indication [Unknown]
